FAERS Safety Report 7346537-7 (Version None)
Quarter: 2011Q1

REPORT INFORMATION
  Report Type: 
  Country: None (occurrence: None)
  Receive Date: 20110311
  Receipt Date: 20110301
  Transmission Date: 20110831
  Serious: Yes (Other)
  Sender: FDA-Public Use
  Company Number: FR-JNJFOC-20110203857

PATIENT
  Sex: Female
  Weight: 50 kg

DRUGS (2)
  1. REMINYL LP [Suspect]
     Indication: PRODUCT USED FOR UNKNOWN INDICATION
     Route: 048
  2. REMINYL LP [Suspect]
     Route: 048

REACTIONS (3)
  - ACCIDENTAL OVERDOSE [None]
  - NO ADVERSE EVENT [None]
  - DRUG ADMINISTRATION ERROR [None]
